FAERS Safety Report 8160872-4 (Version None)
Quarter: 2012Q1

REPORT INFORMATION
  Report Type: 
  Country: None (occurrence: None)
  Receive Date: 20120223
  Receipt Date: 20120220
  Transmission Date: 20120608
  Serious: Yes (Other)
  Sender: FDA-Public Use
  Company Number: PHEH2012US004224

PATIENT
  Sex: Female

DRUGS (16)
  1. CHLORTHALIDONE [Concomitant]
  2. CLONIDINE [Concomitant]
  3. DIOVAN [Suspect]
     Dosage: 2 DF (160 MG), PER DAY
  4. METOPROLOL TARTRATE [Concomitant]
  5. DICYCLOMINE [Concomitant]
  6. NORVASC [Concomitant]
  7. LYRICA [Concomitant]
  8. ALPRAZOLAM [Concomitant]
  9. TRAMADOL HCL [Concomitant]
  10. ASPIRIN [Concomitant]
     Dosage: 81 MG, UNK
  11. ZANTAC [Concomitant]
  12. AMLODIPINE [Concomitant]
  13. METFORMIN HCL [Concomitant]
  14. GABAPENTIN [Concomitant]
  15. TETRACYCLINE [Concomitant]
  16. AMITRIPTYLINE HCL [Concomitant]

REACTIONS (4)
  - HYPERTENSION [None]
  - PAIN [None]
  - NEUROPATHY PERIPHERAL [None]
  - DIABETES MELLITUS [None]
